FAERS Safety Report 6606269-7 (Version None)
Quarter: 2010Q1

REPORT INFORMATION
  Report Type: 
  Country: None (occurrence: None)
  Receive Date: 20100226
  Receipt Date: 20100217
  Transmission Date: 20100710
  Serious: Yes (Other)
  Sender: FDA-Public Use
  Company Number: JP-SANOFI-AVENTIS-2010SA010606

PATIENT
  Sex: Male

DRUGS (8)
  1. OXALIPLATIN [Suspect]
     Indication: LARGE INTESTINE CARCINOMA
     Route: 041
     Dates: start: 20091124, end: 20091124
  2. OXALIPLATIN [Suspect]
     Route: 041
     Dates: start: 20100217, end: 20100217
  3. CALCIUM LEVOFOLINATE [Concomitant]
     Indication: LARGE INTESTINE CARCINOMA
     Route: 041
     Dates: start: 20091124, end: 20091124
  4. CALCIUM LEVOFOLINATE [Concomitant]
     Route: 041
     Dates: start: 20100217, end: 20100217
  5. 5-FU [Concomitant]
     Indication: LARGE INTESTINE CARCINOMA
     Route: 040
     Dates: start: 20091124, end: 20091124
  6. 5-FU [Concomitant]
     Route: 041
     Dates: start: 20091124, end: 20091125
  7. 5-FU [Concomitant]
     Route: 040
  8. 5-FU [Concomitant]
     Route: 041

REACTIONS (1)
  - SHOCK [None]
